FAERS Safety Report 6647687-0 (Version None)
Quarter: 2010Q1

REPORT INFORMATION
  Report Type: 
  Country: None (occurrence: None)
  Receive Date: 20100323
  Receipt Date: 20100323
  Transmission Date: 20100710
  Serious: Yes (Hospitalization)
  Sender: FDA-Public Use
  Company Number: None

PATIENT
  Age: 62 Year
  Sex: Female
  Weight: 89.3586 kg

DRUGS (1)
  1. METFORMIN HCL [Suspect]
     Dosage: 1 TAB 2-A DAY 2-A DAY
     Dates: start: 20070701, end: 20100201

REACTIONS (3)
  - ABDOMINAL PAIN [None]
  - GASTRIC DISORDER [None]
  - GASTROINTESTINAL DISORDER [None]
